FAERS Safety Report 7387784-8 (Version None)
Quarter: 2011Q1

REPORT INFORMATION
  Report Type: 
  Country: None (occurrence: None)
  Receive Date: 20110331
  Receipt Date: 20110317
  Transmission Date: 20110831
  Serious: Yes (Other)
  Sender: FDA-Public Use
  Company Number: BR-GENENTECH-308678

PATIENT
  Sex: Female

DRUGS (1)
  1. LUCENTIS [Suspect]
     Indication: PRODUCT USED FOR UNKNOWN INDICATION
     Dosage: 10 MG/ML, UNK
     Route: 031

REACTIONS (4)
  - MACULAR OEDEMA [None]
  - VITREOUS DETACHMENT [None]
  - RETINAL OEDEMA [None]
  - VISUAL IMPAIRMENT [None]
